FAERS Safety Report 17180181 (Version 2)
Quarter: 2020Q1

REPORT INFORMATION
  Report Type: Spontaneous
  Country: GB (occurrence: GB)
  Receive Date: 20191219
  Receipt Date: 20200128
  Transmission Date: 20200409
  Serious: Yes (Hospitalization)
  Sender: FDA-Public Use
  Company Number: GB-PFIZER INC-2019542944

PATIENT
  Age: 63 Year
  Sex: Female

DRUGS (5)
  1. RIVAROXABAN [Interacting]
     Active Substance: RIVAROXABAN
  2. PALBOCICLIB [Suspect]
     Active Substance: PALBOCICLIB
     Indication: BREAST CANCER METASTATIC
     Dosage: UNK, DAILY, 3 WEEKS/4
     Route: 048
     Dates: start: 20191003
  3. FASLODEX [Suspect]
     Active Substance: FULVESTRANT
     Dosage: 4 WEEKLY
     Route: 030
  4. OMEPRAZOLE. [Concomitant]
     Active Substance: OMEPRAZOLE
     Dosage: 20 MG, DAILY
  5. DOMPERIDONE [Concomitant]
     Active Substance: DOMPERIDONE
     Dosage: 10 G, TDS

REACTIONS (2)
  - Potentiating drug interaction [Recovered/Resolved]
  - Pulmonary embolism [Recovered/Resolved]
